FAERS Safety Report 23963409 (Version 1)
Quarter: 2024Q2

REPORT INFORMATION
  Report Type: Spontaneous
  Country: US (occurrence: None)
  Receive Date: 20240610
  Receipt Date: 20240610
  Transmission Date: 20240716
  Serious: Yes (Other)
  Sender: FDA-Public Use
  Company Number: None

PATIENT
  Age: 46 Year
  Sex: Male
  Weight: 89.9 kg

DRUGS (15)
  1. TECVAYLI [Suspect]
     Active Substance: TECLISTAMAB-CQYV
     Indication: Plasma cell myeloma
     Dosage: OTHER FREQUENCY : WEEKLY;?
     Route: 058
     Dates: start: 20240520, end: 20240604
  2. ALLOPURINOL [Concomitant]
     Active Substance: ALLOPURINOL
  3. ATOVAQUONE [Concomitant]
     Active Substance: ATOVAQUONE
  4. Zerbaza [Concomitant]
     Dates: start: 20240609, end: 20240610
  5. METOPROLOL [Concomitant]
     Active Substance: METOPROLOL
     Dates: end: 20240609
  6. DIGOXIN [Concomitant]
     Active Substance: DIGOXIN
     Dates: start: 20240607, end: 20240609
  7. GABAPENTIN [Concomitant]
     Active Substance: GABAPENTIN
  8. LEVOFLOXACIN [Concomitant]
     Active Substance: LEVOFLOXACIN
     Dates: end: 20240609
  9. MEROPENEM [Concomitant]
     Active Substance: MEROPENEM
     Dates: start: 20240608
  10. MIDODRINE [Concomitant]
     Active Substance: MIDODRINE
     Dates: start: 20240607
  11. PANTOPRAZOLE [Concomitant]
     Active Substance: PANTOPRAZOLE
     Dates: start: 20240605
  12. RASBURICASE [Concomitant]
     Active Substance: RASBURICASE
     Dates: start: 20240609
  13. VANCOMYCIN [Concomitant]
     Active Substance: VANCOMYCIN
     Dates: start: 20240604, end: 20240609
  14. PROPOFOL [Concomitant]
     Active Substance: PROPOFOL
     Dates: start: 20240609
  15. SODIUM BICARBONATE [Concomitant]
     Active Substance: SODIUM BICARBONATE
     Dates: start: 20240609, end: 20240610

REACTIONS (9)
  - Tachycardia [None]
  - Hypotension [None]
  - Infection [None]
  - Anaemia [None]
  - Cytokine release syndrome [None]
  - Electrolyte imbalance [None]
  - Hyperkalaemia [None]
  - Sepsis [None]
  - Tumour lysis syndrome [None]

NARRATIVE: CASE EVENT DATE: 20240609
